FAERS Safety Report 7482343-0 (Version None)
Quarter: 2011Q2

REPORT INFORMATION
  Report Type: 
  Country: None (occurrence: None)
  Receive Date: 20110516
  Receipt Date: 20110512
  Transmission Date: 20111010
  Serious: Yes (Other)
  Sender: FDA-Public Use
  Company Number: ES-PFIZER INC-2011102714

PATIENT
  Age: 97 Year
  Sex: Female

DRUGS (5)
  1. KETESSE [Interacting]
     Indication: SCIATICA
     Dosage: 75 MG, 1X/DAY
     Route: 048
     Dates: start: 20100201, end: 20100306
  2. ALDACTONE [Suspect]
     Indication: HYPERTENSION
     Dosage: 25 MG, 1X/DAY
     Route: 048
     Dates: end: 20100306
  3. ENALAPRIL MALEATE [Interacting]
     Indication: HYPERTENSION
     Dosage: 20 MG, 1X/DAY
     Route: 048
     Dates: end: 20100306
  4. MORPHINE HYDROCHLORIDE [Concomitant]
     Indication: SCIATICA
     Dosage: 30 MG, 1X/DAY
     Route: 048
     Dates: start: 20100201, end: 20100306
  5. LYRICA [Concomitant]
     Indication: SCIATICA
     Dosage: 75 MG, 1X/DAY
     Route: 048
     Dates: start: 20100201

REACTIONS (3)
  - HYPERKALAEMIA [None]
  - DRUG INTERACTION [None]
  - RENAL FAILURE ACUTE [None]
